FAERS Safety Report 8971659 (Version 2)
Quarter: 2013Q1

REPORT INFORMATION
  Report Type: Spontaneous
  Country: US (occurrence: US)
  Receive Date: 20121217
  Receipt Date: 20130117
  Transmission Date: 20140127
  Serious: Yes (Other)
  Sender: FDA-Public Use
  Company Number: US-PFIZER INC-2012313317

PATIENT
  Sex: Female
  Weight: 53 kg

DRUGS (1)
  1. XALATAN [Suspect]
     Indication: EYE DISORDER
     Dosage: UNK

REACTIONS (1)
  - Convulsion [Recovered/Resolved]
